FAERS Safety Report 6974650-2 (Version None)
Quarter: 2010Q3

REPORT INFORMATION
  Report Type: 
  Country: None (occurrence: None)
  Receive Date: 20100909
  Receipt Date: 20081209
  Transmission Date: 20110219
  Serious: No
  Sender: FDA-Public Use
  Company Number: US-WYE-H06804908

PATIENT
  Age: 58 Year
  Sex: Female
  Weight: 108.96 kg

DRUGS (10)
  1. PRISTIQ [Suspect]
     Indication: BIPOLAR DISORDER
     Route: 048
     Dates: start: 20081101
  2. KLONOPIN [Concomitant]
  3. TEGRETOL [Concomitant]
  4. BYETTA [Concomitant]
  5. ZOMIG [Concomitant]
  6. FOLIC ACID [Concomitant]
  7. LEVOTHROID [Concomitant]
  8. SINGULAIR [Concomitant]
  9. GEODON [Concomitant]
  10. REMERON [Concomitant]

REACTIONS (5)
  - ANXIETY [None]
  - HOSTILITY [None]
  - IRRITABILITY [None]
  - TREMOR [None]
  - UNEVALUABLE EVENT [None]
